FAERS Safety Report 23344144 (Version 1)
Quarter: 2023Q4

REPORT INFORMATION
  Report Type: Spontaneous
  Country: IT (occurrence: IT)
  Receive Date: 20231227
  Receipt Date: 20231227
  Transmission Date: 20240109
  Serious: Yes (Other)
  Sender: FDA-Public Use
  Company Number: None

PATIENT
  Age: 58 Year
  Sex: Male

DRUGS (1)
  1. CISPLATIN [Suspect]
     Active Substance: CISPLATIN
     Indication: Pharyngeal cancer
     Dosage: 78 MG
     Dates: start: 20231123, end: 20231123

REACTIONS (3)
  - Pruritus [Recovered/Resolved]
  - Malaise [Recovered/Resolved]
  - Sense of oppression [Recovered/Resolved]

NARRATIVE: CASE EVENT DATE: 20231123
